FAERS Safety Report 12235806 (Version 1)
Quarter: 2016Q2

REPORT INFORMATION
  Report Type: Spontaneous
  Country: JP (occurrence: JP)
  Receive Date: 20160404
  Receipt Date: 20160404
  Transmission Date: 20160815
  Serious: Yes (Other)
  Sender: FDA-Public Use
  Company Number: JP-BAYER-2016-060256

PATIENT
  Age: 79 Year
  Sex: Male

DRUGS (7)
  1. ACETYLSALICYLIC ACID({=100 MG) [Suspect]
     Active Substance: ASPIRIN
     Indication: POSTOPERATIVE CARE
     Dosage: 100 MG, QD
     Dates: start: 2013
  2. ACETYLSALICYLIC ACID({=100 MG) [Suspect]
     Active Substance: ASPIRIN
     Indication: POSTOPERATIVE CARE
     Dosage: UNK
  3. CILOSTAZOL. [Concomitant]
     Active Substance: CILOSTAZOL
     Dosage: UNK
     Dates: start: 2013
  4. CLOPIDOGREL [Concomitant]
     Active Substance: CLOPIDOGREL BISULFATE
     Indication: STENT PLACEMENT
     Dosage: 75 MG, QD
     Dates: start: 2013
  5. TICLOPIDINE [Concomitant]
     Active Substance: TICLOPIDINE
     Dosage: 200 MG, QD
     Dates: start: 2014, end: 2014
  6. SARPOGRELATE HYDROCHLORIDE [Concomitant]
     Active Substance: SARPOGRELATE
     Dosage: UNK
     Dates: start: 2013
  7. CLOPIDOGREL [Concomitant]
     Active Substance: CLOPIDOGREL BISULFATE
     Indication: STENT PLACEMENT
     Dosage: LOADING DOSE
     Dates: start: 2013

REACTIONS (5)
  - Vascular stent restenosis [None]
  - Drug ineffective [Recovered/Resolved]
  - Vascular stent restenosis [None]
  - Acute myocardial infarction [None]
  - Vascular stent thrombosis [Recovered/Resolved]

NARRATIVE: CASE EVENT DATE: 201404
